FAERS Safety Report 4636550-2 (Version None)
Quarter: 2005Q2

REPORT INFORMATION
  Report Type: 
  Country: None (occurrence: None)
  Receive Date: 20050415
  Receipt Date: 20050405
  Transmission Date: 20051028
  Serious: Yes (Death)
  Sender: FDA-Public Use
  Company Number: NL-GLAXOSMITHKLINE-B0377860A

PATIENT
  Age: 42 Year
  Sex: Male

DRUGS (5)
  1. AMOXICILLIN AND CLAVULANATE POTASSIUM [Suspect]
     Indication: ILL-DEFINED DISORDER
     Route: 065
     Dates: start: 20050127, end: 20050129
  2. FLUDARABINE PHOSPHATE [Suspect]
     Indication: NON-HODGKIN'S LYMPHOMA
     Dosage: 50MG UNKNOWN
     Route: 048
     Dates: end: 20050208
  3. VALACYCLOVIR HCL [Concomitant]
     Indication: ILL-DEFINED DISORDER
     Dosage: 500MG UNKNOWN
     Route: 065
     Dates: start: 20050101
  4. MOXIFLOXACIN HCL [Concomitant]
     Indication: ILL-DEFINED DISORDER
     Dosage: 400MG UNKNOWN
     Route: 065
     Dates: start: 20050129, end: 20050212
  5. PENTAMIDINE [Concomitant]
     Indication: ILL-DEFINED DISORDER
     Dosage: 300MG MONTHLY
     Route: 055
     Dates: start: 20050101

REACTIONS (8)
  - BLISTER [None]
  - DRUG HYPERSENSITIVITY [None]
  - EXANTHEM [None]
  - LEUKOPENIA [None]
  - MUCOSAL EROSION [None]
  - PEMPHIGUS [None]
  - PYREXIA [None]
  - TOXIC SKIN ERUPTION [None]
